FAERS Safety Report 12281256 (Version 6)
Quarter: 2018Q3

REPORT INFORMATION
  Report Type: Spontaneous
  Country: US (occurrence: US)
  Receive Date: 20160419
  Receipt Date: 20180705
  Transmission Date: 20181010
  Serious: Yes (Hospitalization, Disabling, Other)
  Sender: FDA-Public Use
  Company Number: US-ENDO PHARMACEUTICALS INC.-2016-002750

PATIENT
  Age: 43 Year
  Sex: Male
  Weight: 145.13 kg

DRUGS (11)
  1. AXIRON [Suspect]
     Active Substance: TESTOSTERONE
     Indication: BLOOD TESTOSTERONE DECREASED
  2. AXIRON [Suspect]
     Active Substance: TESTOSTERONE
     Indication: ANDROGEN REPLACEMENT THERAPY
     Dosage: UNK UNKNOWN, DAILY
     Route: 065
     Dates: start: 20130429, end: 20130729
  3. ANDROGEL [Suspect]
     Active Substance: TESTOSTERONE
     Indication: ANDROGEN REPLACEMENT THERAPY
     Dosage: UNK UNKNOWN, DAILY
     Route: 065
     Dates: start: 200605, end: 20101006
  4. TESTOSTERONE CYPIONATE. [Suspect]
     Active Substance: TESTOSTERONE CYPIONATE
     Indication: BLOOD TESTOSTERONE DECREASED
  5. TESTOSTERONE. [Suspect]
     Active Substance: TESTOSTERONE
     Indication: ANDROGEN REPLACEMENT THERAPY
     Dosage: UNK UNKNOWN, UNKNOWN
     Route: 065
     Dates: start: 2011, end: 2011
  6. TESTIM [Suspect]
     Active Substance: TESTOSTERONE
     Indication: BLOOD TESTOSTERONE DECREASED
  7. TESTIM [Suspect]
     Active Substance: TESTOSTERONE
     Indication: ANDROGEN REPLACEMENT THERAPY
     Dosage: UNK UNKNOWN, DAILY
     Route: 062
     Dates: start: 20130424, end: 20130529
  8. ANDROGEL [Suspect]
     Active Substance: TESTOSTERONE
     Indication: BLOOD TESTOSTERONE DECREASED
  9. DEPO?TESTOSTERONE [Suspect]
     Active Substance: TESTOSTERONE CYPIONATE
     Indication: ANDROGEN REPLACEMENT THERAPY
     Dosage: UNK UNKNOWN, Q2W
     Route: 065
     Dates: start: 20101014, end: 20101024
  10. DEPO?TESTOSTERONE [Suspect]
     Active Substance: TESTOSTERONE CYPIONATE
     Indication: BLOOD TESTOSTERONE DECREASED
  11. TESTOSTERONE CYPIONATE. [Suspect]
     Active Substance: TESTOSTERONE CYPIONATE
     Indication: ANDROGEN REPLACEMENT THERAPY
     Dosage: UNK UNKNOWN, Q2W
     Route: 065
     Dates: start: 20120104, end: 20130224

REACTIONS (16)
  - Cellulitis [Unknown]
  - Myocardial infarction [Unknown]
  - Abscess limb [Unknown]
  - Sleep apnoea syndrome [Unknown]
  - Bursitis [Unknown]
  - Pulmonary infarction [Unknown]
  - Amnesia [Unknown]
  - Tendon injury [Not Recovered/Not Resolved]
  - Pelvic abscess [Unknown]
  - Cerebrovascular accident [Unknown]
  - Drug ineffective [Unknown]
  - Pulmonary embolism [Unknown]
  - Perirectal abscess [Unknown]
  - Cerebrovascular accident [Unknown]
  - Dizziness [Unknown]
  - Embolism venous [Unknown]

NARRATIVE: CASE EVENT DATE: 20080213
